FAERS Safety Report 11720379 (Version 4)
Quarter: 2015Q4

REPORT INFORMATION
  Report Type: Report from Study
  Country: UY (occurrence: UY)
  Receive Date: 20151110
  Receipt Date: 20151124
  Transmission Date: 20160304
  Serious: Yes (Life-Threatening)
  Sender: FDA-Public Use
  Company Number: UY-ABBVIE-15P-168-1495046-00

PATIENT
  Age: 61 Year
  Sex: Male
  Weight: 80 kg

DRUGS (3)
  1. RIBAVIRIN. [Suspect]
     Active Substance: RIBAVIRIN
     Indication: CHRONIC HEPATITIS C
     Route: 048
     Dates: start: 20151019, end: 20151111
  2. VIEKIRA PAK [Suspect]
     Active Substance: DASABUVIR\OMBITASVIR\PARITAPREVIR\RITONAVIR
     Indication: CHRONIC HEPATITIS C
     Dosage: 2 DOSES IN THE MORNING/1 AT EVENING-NIGHT
     Route: 048
     Dates: start: 20151019
  3. RIBAVIRIN. [Suspect]
     Active Substance: RIBAVIRIN
     Dosage: 1 TABLET IN MORNING; 2 TABLETS IN AFTERNOON
     Route: 048
     Dates: start: 20151112, end: 20151119

REACTIONS (11)
  - Depression [Recovered/Resolved]
  - Blood bilirubin increased [Not Recovered/Not Resolved]
  - Platelet count increased [Recovering/Resolving]
  - Bilirubin conjugated increased [Recovering/Resolving]
  - Pain in extremity [Recovered/Resolved]
  - Haemoglobin decreased [Unknown]
  - Blood bilirubin unconjugated increased [Recovering/Resolving]
  - Medication error [Unknown]
  - Fatigue [Unknown]
  - Transaminases decreased [Recovering/Resolving]
  - Anaemia [Recovering/Resolving]

NARRATIVE: CASE EVENT DATE: 20151029
